FAERS Safety Report 11337812 (Version 1)
Quarter: 2015Q3

REPORT INFORMATION
  Report Type: Spontaneous
  Country: US (occurrence: US)
  Receive Date: 20150803
  Receipt Date: 20150803
  Transmission Date: 20151125
  Serious: No
  Sender: FDA-Public Use
  Company Number: US-ELI_LILLY_AND_COMPANY-US201001002659

PATIENT
  Sex: Female

DRUGS (2)
  1. RISPERDAL [Concomitant]
     Active Substance: RISPERIDONE
     Dates: start: 1998
  2. ZYPREXA [Suspect]
     Active Substance: OLANZAPINE

REACTIONS (6)
  - Pain in extremity [Unknown]
  - Peripheral vascular disorder [Unknown]
  - Muscle twitching [Unknown]
  - Neuralgia [Unknown]
  - Tremor [Unknown]
  - Off label use [Unknown]

NARRATIVE: CASE EVENT DATE: 1998
